FAERS Safety Report 23224473 (Version 6)
Quarter: 2024Q2

REPORT INFORMATION
  Report Type: Spontaneous
  Country: US (occurrence: US)
  Receive Date: 20231124
  Receipt Date: 20240416
  Transmission Date: 20240716
  Serious: Yes (Hospitalization, Other)
  Sender: FDA-Public Use
  Company Number: US-HIKMA PHARMACEUTICALS USA INC.-US-H14001-23-67168

PATIENT
  Age: 64 Year
  Sex: Male
  Weight: 72.7 kg

DRUGS (57)
  1. METHOTREXATE [Suspect]
     Active Substance: METHOTREXATE
     Dosage: 10 MILLIGRAM, QD
     Route: 048
     Dates: start: 20230530
  2. METHOTREXATE [Suspect]
     Active Substance: METHOTREXATE
     Dosage: 10 MILLIGRAM, QD
     Route: 048
     Dates: start: 20230605
  3. METHOTREXATE [Suspect]
     Active Substance: METHOTREXATE
     Dosage: 10 MILLIGRAM, QD
     Route: 048
     Dates: start: 20230612
  4. METHOTREXATE [Suspect]
     Active Substance: METHOTREXATE
     Dosage: 10 MILLIGRAM, QD
     Route: 048
     Dates: start: 20230619
  5. METHOTREXATE [Suspect]
     Active Substance: METHOTREXATE
     Dosage: 10 MILLIGRAM, QD
     Route: 048
     Dates: start: 20230626
  6. METHOTREXATE [Suspect]
     Active Substance: METHOTREXATE
     Dosage: 10 MILLIGRAM, QD
     Route: 048
     Dates: start: 20230703
  7. METHOTREXATE [Suspect]
     Active Substance: METHOTREXATE
     Dosage: 10 MILLIGRAM, QD
     Route: 048
     Dates: start: 20230707
  8. METHOTREXATE [Suspect]
     Active Substance: METHOTREXATE
     Dosage: 10 MILLIGRAM, QD
     Route: 048
     Dates: start: 20230717
  9. METHOTREXATE [Suspect]
     Active Substance: METHOTREXATE
     Dosage: 10 MILLIGRAM, QD
     Route: 048
     Dates: start: 20230724
  10. METHOTREXATE [Suspect]
     Active Substance: METHOTREXATE
     Dosage: 10 MILLIGRAM, QD
     Route: 048
     Dates: start: 20230731
  11. METHOTREXATE [Suspect]
     Active Substance: METHOTREXATE
     Dosage: 10 MILLIGRAM, QD
     Route: 048
     Dates: start: 20230807
  12. METHOTREXATE [Suspect]
     Active Substance: METHOTREXATE
     Dosage: 10 MILLIGRAM, QD
     Route: 048
     Dates: start: 20230809
  13. METHOTREXATE [Suspect]
     Active Substance: METHOTREXATE
     Dosage: 10 MILLIGRAM, QD
     Route: 048
     Dates: start: 20230814
  14. METHOTREXATE [Suspect]
     Active Substance: METHOTREXATE
     Dosage: 10 MILLIGRAM, QD
     Route: 048
     Dates: start: 20230821
  15. METHOTREXATE [Suspect]
     Active Substance: METHOTREXATE
     Dosage: 10 MILLIGRAM, QD
     Route: 048
     Dates: start: 20230828
  16. METHOTREXATE [Suspect]
     Active Substance: METHOTREXATE
     Dosage: 10 MILLIGRAM, QD
     Route: 048
     Dates: start: 20230904
  17. METHOTREXATE [Suspect]
     Active Substance: METHOTREXATE
     Dosage: 10 MILLIGRAM, QD
     Route: 048
     Dates: start: 20230911
  18. METHOTREXATE [Suspect]
     Active Substance: METHOTREXATE
     Dosage: 10 MILLIGRAM, QD
     Route: 048
     Dates: start: 20230918
  19. METHOTREXATE [Suspect]
     Active Substance: METHOTREXATE
     Dosage: 10 MILLIGRAM, QD
     Route: 048
     Dates: start: 20230925
  20. METHOTREXATE [Suspect]
     Active Substance: METHOTREXATE
     Dosage: 10 MILLIGRAM, QD
     Route: 048
     Dates: start: 20231002
  21. METHOTREXATE [Suspect]
     Active Substance: METHOTREXATE
     Dosage: 10 MILLIGRAM, QD
     Route: 048
     Dates: start: 20231009
  22. METHOTREXATE [Suspect]
     Active Substance: METHOTREXATE
     Dosage: 10 MILLIGRAM, QD
     Route: 048
     Dates: start: 20231016
  23. METHOTREXATE [Suspect]
     Active Substance: METHOTREXATE
     Dosage: 10 MILLIGRAM, QD
     Route: 048
     Dates: start: 20231016
  24. METHOTREXATE [Suspect]
     Active Substance: METHOTREXATE
     Indication: Immunosuppression
     Dosage: 15 MILLIGRAM, QD
     Route: 048
     Dates: start: 20220926
  25. METHOTREXATE [Suspect]
     Active Substance: METHOTREXATE
     Dosage: 15 MILLIGRAM, QD
     Route: 048
     Dates: start: 20221003
  26. METHOTREXATE [Suspect]
     Active Substance: METHOTREXATE
     Dosage: 15 MILLIGRAM, QD
     Route: 048
     Dates: start: 20221010
  27. METHOTREXATE [Suspect]
     Active Substance: METHOTREXATE
     Dosage: 7.5 MILLIGRAM, QD
     Route: 048
     Dates: start: 20230410
  28. METHOTREXATE [Suspect]
     Active Substance: METHOTREXATE
     Dosage: 7.5 MILLIGRAM, QD
     Route: 048
     Dates: start: 20230417
  29. METHOTREXATE [Suspect]
     Active Substance: METHOTREXATE
     Dosage: 7.5 MILLIGRAM, QD
     Route: 048
     Dates: start: 20230424
  30. METHOTREXATE [Suspect]
     Active Substance: METHOTREXATE
     Dosage: 7.5 MILLIGRAM, QD
     Route: 048
     Dates: start: 20230501
  31. METHOTREXATE [Suspect]
     Active Substance: METHOTREXATE
     Dosage: 7.5 MILLIGRAM, QD
     Route: 048
     Dates: start: 20230508
  32. METHOTREXATE [Suspect]
     Active Substance: METHOTREXATE
     Dosage: 7.5 MILLIGRAM, QD
     Route: 048
     Dates: start: 20230515
  33. PEGLOTICASE [Suspect]
     Active Substance: PEGLOTICASE
     Indication: Gout
     Dosage: 8 MILLIGRAM, VIA INTRAVENOUS DRIP FOR 60 MIN
     Route: 041
     Dates: start: 20230503
  34. PEGLOTICASE [Suspect]
     Active Substance: PEGLOTICASE
     Dosage: 8 MILLIGRAM, VIA INTRAVENOUS DRIP FOR 60 MIN
     Route: 041
     Dates: start: 20230531
  35. PEGLOTICASE [Suspect]
     Active Substance: PEGLOTICASE
     Dosage: 8 MILLIGRAM, VIA INTRAVENOUS DRIP FOR 60 MIN
     Route: 041
     Dates: start: 20230614
  36. PEGLOTICASE [Suspect]
     Active Substance: PEGLOTICASE
     Dosage: 8 MILLIGRAM, VIA INTRAVENOUS DRIP FOR 60 MIN
     Route: 041
     Dates: start: 20230714
  37. PEGLOTICASE [Suspect]
     Active Substance: PEGLOTICASE
     Dosage: 8 MILLIGRAM, VIA INTRAVENOUS DRIP FOR 60 MIN
     Route: 041
     Dates: start: 20230726
  38. PEGLOTICASE [Suspect]
     Active Substance: PEGLOTICASE
     Dosage: 8 MILLIGRAM, VIA INTRAVENOUS DRIP FOR 60 MIN
     Route: 041
     Dates: start: 20230809
  39. PEGLOTICASE [Suspect]
     Active Substance: PEGLOTICASE
     Dosage: 8 MILLIGRAM, VIA INTRAVENOUS DRIP FOR 60 MIN
     Route: 041
     Dates: start: 20230823
  40. PEGLOTICASE [Suspect]
     Active Substance: PEGLOTICASE
     Dosage: 8 MILLIGRAM, VIA INTRAVENOUS DRIP FOR 60 MIN
     Route: 041
     Dates: start: 20230906
  41. PEGLOTICASE [Suspect]
     Active Substance: PEGLOTICASE
     Dosage: 8 MILLIGRAM, VIA INTRAVENOUS DRIP FOR 60 MIN
     Route: 041
     Dates: start: 20230920
  42. PEGLOTICASE [Suspect]
     Active Substance: PEGLOTICASE
     Dosage: 8 MILLIGRAM, VIA INTRAVENOUS DRIP FOR 60 MIN
     Route: 041
     Dates: start: 20231004
  43. ATORVASTATIN [Concomitant]
     Active Substance: ATORVASTATIN
     Indication: Hyperlipidaemia
     Dosage: 40 MILLIGRAM, BID
     Route: 048
     Dates: start: 2019
  44. CIPRO [Concomitant]
     Active Substance: CIPROFLOXACIN HYDROCHLORIDE
     Indication: Gastroenteritis
     Dosage: 500 MILLIGRAM, BID
     Route: 048
     Dates: start: 20221018
  45. COLCHICINE [Concomitant]
     Active Substance: COLCHICINE
     Indication: Gouty tophus
     Dosage: 0.6 MILLIGRAM, QD
     Route: 048
     Dates: start: 20220519
  46. FLAGYL [Concomitant]
     Active Substance: METRONIDAZOLE\METRONIDAZOLE HYDROCHLORIDE
     Indication: Product used for unknown indication
     Dosage: 500 MILLIGRAM, TID
     Route: 048
     Dates: start: 20221018
  47. FOLIC ACID [Concomitant]
     Active Substance: FOLIC ACID
     Indication: Gout
     Dosage: 1 MILLIGRAM, QD
     Route: 048
     Dates: start: 20230405
  48. IMODIUM [Concomitant]
     Active Substance: LOPERAMIDE HYDROCHLORIDE
     Indication: Product used for unknown indication
     Dosage: 1 DOSAGE FORM, PRN
     Route: 065
     Dates: start: 20221018
  49. LISINOPRIL [Concomitant]
     Active Substance: LISINOPRIL
     Indication: Hypertension
     Dosage: 10 MILLIGRAM, QD
     Route: 048
     Dates: start: 2017
  50. MELOXICAM [Concomitant]
     Active Substance: MELOXICAM
     Indication: Spinal fracture
     Dosage: 10.5 MILLIGRAM, PRN
     Route: 048
     Dates: start: 2011
  51. METFORMIN [Concomitant]
     Active Substance: METFORMIN HYDROCHLORIDE
     Indication: Type 2 diabetes mellitus
     Dosage: 500 MILLIGRAM, BID
     Route: 048
     Dates: start: 2017
  52. OMEPRAZOLE [Concomitant]
     Active Substance: OMEPRAZOLE
     Indication: Product used for unknown indication
     Dosage: 40 MILLIGRAM, BID
     Route: 048
     Dates: start: 20221018
  53. TRAMADOL [Concomitant]
     Active Substance: TRAMADOL\TRAMADOL HYDROCHLORIDE
     Indication: Spinal fracture
     Dosage: 200 MILLIGRAM, PRN
     Route: 048
     Dates: start: 2011
  54. VANCOMYCIN [Concomitant]
     Active Substance: VANCOMYCIN
     Indication: Gastroenteritis
     Dosage: 1100 MILLIGRAM, QD
     Route: 042
     Dates: start: 20221011, end: 20221013
  55. VANCOMYCIN [Concomitant]
     Active Substance: VANCOMYCIN
     Indication: Sepsis
  56. ZOFRAN [Concomitant]
     Active Substance: ONDANSETRON HYDROCHLORIDE
     Indication: Product used for unknown indication
     Dosage: 4 MILLIGRAM, TID
     Route: 048
     Dates: start: 20221018, end: 20221023
  57. ZOSYN [Concomitant]
     Active Substance: PIPERACILLIN SODIUM\TAZOBACTAM SODIUM
     Indication: Gouty tophus
     Dosage: 3.375 GRAM, Q8H
     Route: 065
     Dates: start: 20221011, end: 20231013

REACTIONS (14)
  - Sepsis [Recovered/Resolved]
  - Shigella infection [Recovered/Resolved]
  - Gastroenteritis [Recovered/Resolved]
  - Diarrhoea [Unknown]
  - Nausea [Unknown]
  - Pyrexia [Unknown]
  - Night sweats [Unknown]
  - Lactic acidosis [Unknown]
  - Acute kidney injury [Unknown]
  - Vomiting [Unknown]
  - Tachycardia [Unknown]
  - Dizziness [Unknown]
  - Product dose omission issue [Unknown]
  - Pneumonia [Unknown]

NARRATIVE: CASE EVENT DATE: 20221011
